FAERS Safety Report 4426754-6 (Version None)
Quarter: 2004Q3

REPORT INFORMATION
  Report Type: 
  Country: None (occurrence: None)
  Receive Date: 20040816
  Receipt Date: 20040805
  Transmission Date: 20050211
  Serious: Yes (Hospitalization)
  Sender: FDA-Public Use
  Company Number: JP-ROCHE-376673

PATIENT
  Age: 36 Year
  Sex: Male

DRUGS (5)
  1. PANALDINE [Suspect]
     Indication: CEREBRAL INFARCTION
     Route: 048
     Dates: start: 20040702, end: 20040715
  2. ASPIRIN [Concomitant]
     Indication: CEREBRAL INFARCTION
     Route: 048
     Dates: start: 20040604, end: 20040715
  3. SERENAL [Concomitant]
     Indication: AUTISM
     Route: 048
  4. SERENACE [Concomitant]
     Indication: AUTISM
     Route: 048
  5. DIAZEPAM [Concomitant]
     Indication: AUTISM
     Route: 048

REACTIONS (1)
  - TOXIC SKIN ERUPTION [None]
